FAERS Safety Report 19861401 (Version 1)
Quarter: 2021Q3

REPORT INFORMATION
  Report Type: Spontaneous
  Country: US (occurrence: US)
  Receive Date: 20210918
  Receipt Date: 20210918
  Transmission Date: 20211014
  Serious: No
  Sender: FDA-Public Use
  Company Number: None

PATIENT
  Sex: Female
  Weight: 106 kg

DRUGS (2)
  1. CARBOPLATIN. [Suspect]
     Active Substance: CARBOPLATIN
     Dates: end: 20210818
  2. TAXOL [Suspect]
     Active Substance: PACLITAXEL
     Dates: end: 20210818

REACTIONS (7)
  - Oesophagitis [None]
  - Hypophagia [None]
  - Feeding disorder [None]
  - Fatigue [None]
  - Lymphocyte count decreased [None]
  - White blood cell count decreased [None]
  - Cough [None]

NARRATIVE: CASE EVENT DATE: 20210910
